FAERS Safety Report 8496767-6 (Version None)
Quarter: 2012Q3

REPORT INFORMATION
  Report Type: 
  Country: None (occurrence: None)
  Receive Date: 20120709
  Receipt Date: 20120709
  Transmission Date: 20120928
  Serious: Yes (Death, Other)
  Sender: FDA-Public Use
  Company Number: IR-ROCHE-803220

PATIENT

DRUGS (9)
  1. MABTHERA [Suspect]
     Indication: JUVENILE ARTHRITIS
     Route: 042
  2. FOLIC ACID [Suspect]
     Indication: JUVENILE ARTHRITIS
     Route: 065
  3. CYCLOPHOSPHAMIDE [Concomitant]
     Route: 042
     Dates: start: 20110510, end: 20110620
  4. MABTHERA [Suspect]
     Route: 042
  5. MABTHERA [Suspect]
     Route: 042
  6. METHOTREXATE [Suspect]
     Indication: JUVENILE ARTHRITIS
     Dosage: DOSE GIVEN ON 22/JAN/2011, 29/JAN/2011, 05/FEB/2011 AND 12/FEB/2011
     Route: 048
  7. MABTHERA [Suspect]
     Route: 042
  8. PREDNISOLONE [Suspect]
     Indication: JUVENILE ARTHRITIS
     Dosage: DOSE GIVEN ON 22/JAN/2011, 29/JAN/2011, 05/FEB/2011 AND 12/FEB/2011
     Route: 065
  9. ENBREL [Concomitant]

REACTIONS (3)
  - SUDDEN DEATH [None]
  - HYPOTENSION [None]
  - FLUSHING [None]
